FAERS Safety Report 6538005-7 (Version None)
Quarter: 2010Q1

REPORT INFORMATION
  Report Type: 
  Country: None (occurrence: None)
  Receive Date: 20100111
  Receipt Date: 20091228
  Transmission Date: 20100710
  Serious: Yes (Life-Threatening, Hospitalization)
  Sender: FDA-Public Use
  Company Number: 2010SA000399

PATIENT
  Age: 59 Year
  Sex: Male

DRUGS (3)
  1. FLUDARABINE PHOSPHATE [Suspect]
     Indication: CHRONIC LYMPHOCYTIC LEUKAEMIA
     Dosage: 40 MILLIGRAM(S) /SQUARE METER; EVERY CYCLE; ORAL
     Route: 048
     Dates: start: 20060101
  2. CYCLOPHOSPHAMIDE [Suspect]
     Indication: CHRONIC LYMPHOCYTIC LEUKAEMIA
     Dosage: 250 MILLIGRAM(S) /SQUARE METER; EVERY CYCLE; ORAL
     Route: 048
  3. PREDNISOLONE [Concomitant]

REACTIONS (6)
  - HAEMODIALYSIS [None]
  - INFLUENZA [None]
  - PNEUMONIA [None]
  - RESPIRATORY FAILURE [None]
  - SEPSIS [None]
  - SHOCK [None]
